FAERS Safety Report 22635873 (Version 1)
Quarter: 2023Q2

REPORT INFORMATION
  Report Type: Spontaneous
  Country: US (occurrence: None)
  Receive Date: 20230623
  Receipt Date: 20230623
  Transmission Date: 20230721
  Serious: Yes (Other)
  Sender: FDA-Public Use
  Company Number: 2023A145619

PATIENT
  Age: 73 Year
  Sex: Male

DRUGS (4)
  1. OLAPARIB [Suspect]
     Active Substance: OLAPARIB
     Indication: Transitional cell carcinoma
     Route: 048
     Dates: start: 201711
  2. DURVALUMAB\TREMELIMUMAB [Suspect]
     Active Substance: DURVALUMAB\TREMELIMUMAB
     Indication: Transitional cell carcinoma
     Dosage: 1500 MG IV AND 75 MG IV EVERY 4 WK
     Route: 042
     Dates: start: 201904
  3. CISPLATIN/GEMCITABINE [Concomitant]
     Dates: start: 201906
  4. PEMBROLIZUMAB [Concomitant]
     Active Substance: PEMBROLIZUMAB
     Dosage: 200 MG IV EVERY 3 WK

REACTIONS (1)
  - Malignant neoplasm progression [Unknown]

NARRATIVE: CASE EVENT DATE: 20190301
